FAERS Safety Report 20876734 (Version 1)
Quarter: 2022Q2

REPORT INFORMATION
  Report Type: Spontaneous
  Country: CA (occurrence: None)
  Receive Date: 20220526
  Receipt Date: 20220526
  Transmission Date: 20220721
  Serious: Yes (Other)
  Sender: FDA-Public Use
  Company Number: CA-ROCHE-3100234

PATIENT
  Sex: Male

DRUGS (1)
  1. ALECTINIB [Suspect]
     Active Substance: ALECTINIB
     Indication: Lung neoplasm malignant
     Route: 065

REACTIONS (5)
  - Pulmonary embolism [Unknown]
  - Cerebral haemorrhage [Unknown]
  - Seizure [Unknown]
  - Dysphagia [Unknown]
  - Gastrointestinal tube insertion [Unknown]
